FAERS Safety Report 7091498-1 (Version None)
Quarter: 2010Q4

REPORT INFORMATION
  Report Type: 
  Country: None (occurrence: None)
  Receive Date: 20101109
  Receipt Date: 20101102
  Transmission Date: 20110411
  Serious: Yes (Other)
  Sender: FDA-Public Use
  Company Number: US-PFIZER INC-2010139566

PATIENT
  Sex: Female
  Weight: 68.027 kg

DRUGS (3)
  1. LYRICA [Suspect]
     Indication: FIBROMYALGIA
     Dosage: 150 MG, 4X/DAY
     Route: 048
     Dates: start: 20040101
  2. RANITIDINE HYDROCHLORIDE [Concomitant]
     Indication: GASTROOESOPHAGEAL REFLUX DISEASE
     Dosage: 75 MG, AS NEEDED
     Route: 048
  3. LORTAB [Concomitant]
     Indication: SLEEP DISORDER
     Dosage: 10/500 MG, AS NEEDED

REACTIONS (5)
  - DECREASED APPETITE [None]
  - DRUG DOSE OMISSION [None]
  - MOVEMENT DISORDER [None]
  - PAIN [None]
  - WEIGHT INCREASED [None]
